FAERS Safety Report 18589838 (Version 2)
Quarter: 2020Q4

REPORT INFORMATION
  Report Type: Spontaneous
  Country: US (occurrence: US)
  Receive Date: 20201208
  Receipt Date: 20201221
  Transmission Date: 20210114
  Serious: Yes (Other)
  Sender: FDA-Public Use
  Company Number: US-GLAXOSMITHKLINE-US2020AMR239654

PATIENT
  Sex: Female

DRUGS (7)
  1. FLOLAN [Suspect]
     Active Substance: EPOPROSTENOL SODIUM
     Indication: PULMONARY ARTERIAL HYPERTENSION
     Dosage: 25.5 DF, CO (25.5 NG/KG/MIN)
     Dates: start: 20201125
  2. FLOLAN DILUENT PH 12 [Suspect]
     Active Substance: GLYCINE\MANNITOL\SODIUM CHLORIDE
     Indication: PULMONARY ARTERIAL HYPERTENSION
     Dosage: UNK
     Dates: start: 20190222
  3. IRON SUPPLEMENT [Suspect]
     Active Substance: IRON
     Indication: BLOOD IRON DECREASED
     Dosage: UNK
  4. SALINE FLUSHES [Suspect]
     Active Substance: SODIUM CHLORIDE
     Indication: PRODUCT USED FOR UNKNOWN INDICATION
     Dosage: UNK
  5. WARFARIN [Concomitant]
     Active Substance: WARFARIN
     Indication: PRODUCT USED FOR UNKNOWN INDICATION
     Dosage: UNK
  6. OPSUMIT [Concomitant]
     Active Substance: MACITENTAN
     Indication: PRODUCT USED FOR UNKNOWN INDICATION
     Dosage: UNK
  7. ADEMPAS [Concomitant]
     Active Substance: RIOCIGUAT
     Indication: PRODUCT USED FOR UNKNOWN INDICATION
     Dosage: UNK

REACTIONS (13)
  - Anaemia [Unknown]
  - Flushing [Unknown]
  - Fatigue [Unknown]
  - Cellulitis [Unknown]
  - Oedema peripheral [Unknown]
  - Blood iron decreased [Unknown]
  - Decreased appetite [Unknown]
  - Rash [Unknown]
  - Constipation [Unknown]
  - Feeling cold [Unknown]
  - Nausea [Unknown]
  - Chills [Unknown]
  - Abdominal discomfort [Unknown]
